FAERS Safety Report 7911555-4 (Version None)
Quarter: 2011Q4

REPORT INFORMATION
  Report Type: 
  Country: None (occurrence: None)
  Receive Date: 20111109
  Receipt Date: 20111031
  Transmission Date: 20120403
  Serious: Yes (Hospitalization)
  Sender: FDA-Public Use
  Company Number: 2011MA016006

PATIENT
  Age: 35 Year
  Sex: Female

DRUGS (7)
  1. BENZTROPINE MESYLATE [Concomitant]
  2. PERPHENAZINE [Concomitant]
  3. HALOPERIDOL [Concomitant]
  4. RISPERIDONE [Suspect]
     Indication: SCHIZOPHRENIA
     Dosage: 4 MG, TID, PO
     Route: 048
  5. OLANZAPINE [Concomitant]
  6. LITHIUM CARBONATE [Concomitant]
  7. VALPROIC ACID [Concomitant]

REACTIONS (3)
  - ABDOMINAL DISTENSION [None]
  - AGITATION [None]
  - ILEUS PARALYTIC [None]
